FAERS Safety Report 4510406-8 (Version None)
Quarter: 2004Q4

REPORT INFORMATION
  Report Type: 
  Country: None (occurrence: None)
  Receive Date: 20041119
  Receipt Date: 20041119
  Transmission Date: 20050328
  Serious: Yes (Other)
  Sender: FDA-Public Use
  Company Number: FR_041005130

PATIENT
  Age: 67 Year
  Sex: Female

DRUGS (4)
  1. FORTEO [Suspect]
     Indication: OSTEOPOROSIS
     Dosage: 20 UG/1 DAY
     Dates: start: 20041001, end: 20041001
  2. CALTRATE (CALCIUM CARBONATE) [Concomitant]
  3. ZOLPIDEM TARTRATE [Concomitant]
  4. LEXOMIL (BROMAZEPAM) [Concomitant]

REACTIONS (3)
  - HERPES ZOSTER [None]
  - INJECTION SITE RASH [None]
  - RASH VESICULAR [None]
